FAERS Safety Report 16507332 (Version 2)
Quarter: 2019Q3

REPORT INFORMATION
  Report Type: Spontaneous
  Country: FR (occurrence: FR)
  Receive Date: 20190701
  Receipt Date: 20190807
  Transmission Date: 20191004
  Serious: Yes (Hospitalization, Other)
  Sender: FDA-Public Use
  Company Number: FR-JNJFOC-20190620698

PATIENT
  Age: 85 Year
  Sex: Male
  Weight: 71.6 kg

DRUGS (7)
  1. APIXABAN [Concomitant]
     Active Substance: APIXABAN
     Dosage: 1 TABLET (=5 MG), 2X/DAY (MORNING, EVENING), FOR 3 MONTHS
  2. SERTRALINE [Concomitant]
     Active Substance: SERTRALINE HYDROCHLORIDE
     Dosage: 1X/DAY (EVENING), FOR 3 MONTHS
  3. RIVAROXABAN [Suspect]
     Active Substance: RIVAROXABAN
     Indication: ATRIAL FIBRILLATION
     Dosage: 20 MG, UNK
     Route: 048
     Dates: start: 2015, end: 201904
  4. PARACETAMOL [Concomitant]
     Active Substance: ACETAMINOPHEN
     Dosage: 2 TABLETS (=1000 MG), EVERY 8 HOURS FOR 3 MONTHS
     Route: 048
  5. PERINDOPRIL [Concomitant]
     Active Substance: PERINDOPRIL
     Dosage: 4 MG, 1X/DAY (MORNING), FOR 3 MONTHS
     Route: 048
  6. VERAPAMIL [Concomitant]
     Active Substance: VERAPAMIL HYDROCHLORIDE
     Dosage: 1 TABLET (=240 MG), 2X/DAY (MORNING, EVENING), FOR 3 MONTHS
  7. DIGOXIN. [Concomitant]
     Active Substance: DIGOXIN
     Dosage: 1 TABLET (=0.125 MG), 1X/DAY (MORNING), ORAL, FOR 3 MONTHS

REACTIONS (4)
  - Asthma [Unknown]
  - Ischaemic stroke [Recovering/Resolving]
  - Aortic stenosis [Unknown]
  - Dysphagia [Unknown]

NARRATIVE: CASE EVENT DATE: 201810
